FAERS Safety Report 5216191-9 (Version None)
Quarter: 2007Q1

REPORT INFORMATION
  Report Type: 
  Country: None (occurrence: None)
  Receive Date: 20070123
  Receipt Date: 20070115
  Transmission Date: 20070707
  Serious: Yes (Hospitalization, Other)
  Sender: FDA-Public Use
  Company Number: FR-PFIZER INC-2006148059

PATIENT
  Sex: Male
  Weight: 71 kg

DRUGS (6)
  1. ATORVASTATIN CALCIUM [Suspect]
     Indication: ACUTE CORONARY SYNDROME
     Dosage: TEXT:40
  2. LISINOPRIL [Concomitant]
     Route: 048
  3. TENORDATE [Concomitant]
  4. PLAVIX [Concomitant]
  5. ZOCOR [Concomitant]
  6. EZETIMIBE [Concomitant]
     Route: 048

REACTIONS (4)
  - BLOOD CHOLESTEROL INCREASED [None]
  - CONDITION AGGRAVATED [None]
  - HEPATITIS [None]
  - PYREXIA [None]
